FAERS Safety Report 12002281 (Version 2)
Quarter: 2020Q2

REPORT INFORMATION
  Report Type: Spontaneous
  Country: US (occurrence: US)
  Receive Date: 20160204
  Receipt Date: 20200529
  Transmission Date: 20200713
  Serious: Yes (Death, Hospitalization, Other)
  Sender: FDA-Public Use
  Company Number: US-009507513-1602USA002131

PATIENT
  Sex: Male
  Weight: 72.7 kg

DRUGS (2)
  1. JANUMET [Suspect]
     Active Substance: METFORMIN HYDROCHLORIDE\SITAGLIPTIN PHOSPHATE
     Indication: TYPE 2 DIABETES MELLITUS
     Dosage: 50/1000 (UNITS NOT REPORTED) TABLET, ONE TABLET TWICE DAILY
     Route: 048
     Dates: start: 20110707, end: 201308
  2. FLUOROURACIL (+) IRINOTECAN HYDROCHLORIDE (+) LEUCOVORIN CALCIUM (+) O [Suspect]
     Active Substance: FLUOROURACIL\IRINOTECAN\LEUCOVORIN\OXALIPLATIN
     Dosage: UNK
     Dates: start: 20130812

REACTIONS (18)
  - Tumour invasion [Unknown]
  - Cardiac ablation [Unknown]
  - Peptic ulcer [Recovered/Resolved]
  - Hernia repair [Unknown]
  - Adrenal mass [Recovered/Resolved]
  - Cardio-respiratory arrest [Fatal]
  - Lymphadenopathy [Recovered/Resolved]
  - Splenic granuloma [Unknown]
  - Stomatitis [Unknown]
  - Metastases to liver [Unknown]
  - Neuropathy peripheral [Unknown]
  - Prostatomegaly [Recovering/Resolving]
  - Dehydration [Recovering/Resolving]
  - Pancreatic carcinoma metastatic [Fatal]
  - Emphysema [Unknown]
  - Drug tolerance decreased [Unknown]
  - Aortic arteriosclerosis [Unknown]
  - Blood sodium decreased [Unknown]

NARRATIVE: CASE EVENT DATE: 2013
